FAERS Safety Report 5446947-9 (Version None)
Quarter: 2007Q3

REPORT INFORMATION
  Report Type: 
  Country: None (occurrence: None)
  Receive Date: 20070907
  Receipt Date: 20070905
  Transmission Date: 20080115
  Serious: Yes (Other)
  Sender: FDA-Public Use
  Company Number: US-MERCK-0708USA01825

PATIENT
  Age: 42 Year
  Sex: Male
  Weight: 67 kg

DRUGS (1)
  1. PROPECIA [Suspect]
     Indication: ALOPECIA
     Route: 048
     Dates: start: 20070407, end: 20070710

REACTIONS (2)
  - TESTICULAR PAIN [None]
  - TESTICULAR SWELLING [None]
